FAERS Safety Report 24878003 (Version 2)
Quarter: 2025Q1

REPORT INFORMATION
  Report Type: Spontaneous
  Country: US (occurrence: US)
  Receive Date: 20250123
  Receipt Date: 20250314
  Transmission Date: 20250408
  Serious: No
  Sender: TEVA
  Company Number: US-TEVA-VS-3285269

PATIENT
  Age: 75 Year
  Sex: Male

DRUGS (3)
  1. CLONAZEPAM [Suspect]
     Active Substance: CLONAZEPAM
     Indication: Anxiety
     Dosage: ORALLY DISINTEGRATING
     Route: 065
  2. CLONAZEPAM [Suspect]
     Active Substance: CLONAZEPAM
     Indication: Anxiety
     Route: 048
  3. PROCHLORPERAZINE [Concomitant]
     Active Substance: PROCHLORPERAZINE
     Indication: Product used for unknown indication

REACTIONS (13)
  - Abdominal pain [Unknown]
  - Drug ineffective [Unknown]
  - Dysphonia [Unknown]
  - Nervousness [Unknown]
  - Somnolence [Unknown]
  - Feeling jittery [Unknown]
  - Dizziness [Unknown]
  - Abdominal discomfort [Unknown]
  - Nausea [Unknown]
  - Disease progression [Unknown]
  - Treatment noncompliance [Unknown]
  - Drug intolerance [Unknown]
  - Product availability issue [Unknown]
